FAERS Safety Report 4340835-7 (Version None)
Quarter: 2004Q2

REPORT INFORMATION
  Report Type: 
  Country: None (occurrence: None)
  Receive Date: 20040419
  Receipt Date: 20040113
  Transmission Date: 20050107
  Serious: No
  Sender: FDA-Public Use
  Company Number: US-GLAXOSMITHKLINE-A0492911A

PATIENT
  Sex: Female

DRUGS (4)
  1. ESKALITH [Suspect]
     Dosage: 300MG TWICE PER DAY
     Route: 048
     Dates: start: 20031120
  2. CLARITIN [Concomitant]
  3. FLOVENT [Concomitant]
  4. FLONASE [Concomitant]

REACTIONS (1)
  - MENSTRUAL DISORDER [None]
